FAERS Safety Report 7790103-6 (Version None)
Quarter: 2011Q3

REPORT INFORMATION
  Report Type: 
  Country: None (occurrence: None)
  Receive Date: 20110930
  Receipt Date: 20101105
  Transmission Date: 20111222
  Serious: No
  Sender: FDA-Public Use
  Company Number: US-ASTRAZENECA-2010SE52890

PATIENT
  Sex: Female

DRUGS (2)
  1. ARIMIDEX [Suspect]
     Indication: BREAST CANCER
     Route: 048
     Dates: start: 20070101
  2. ARIMIDEX [Suspect]
     Dosage: GENERIC
     Route: 048

REACTIONS (8)
  - PAIN IN EXTREMITY [None]
  - ARTHRALGIA [None]
  - DYSPHONIA [None]
  - HEADACHE [None]
  - FEELING ABNORMAL [None]
  - HOT FLUSH [None]
  - ALOPECIA [None]
  - BONE PAIN [None]
